FAERS Safety Report 5116192-5 (Version None)
Quarter: 2006Q3

REPORT INFORMATION
  Report Type: 
  Country: None (occurrence: None)
  Receive Date: 20060927
  Receipt Date: 20060628
  Transmission Date: 20061208
  Serious: Yes (Other)
  Sender: FDA-Public Use
  Company Number: US-BRISTOL-MYERS SQUIBB COMPANY-13455720

PATIENT
  Age: 67 Year
  Sex: Male
  Weight: 93 kg

DRUGS (1)
  1. DEFINITY [Suspect]
     Route: 042
     Dates: start: 20060619

REACTIONS (4)
  - CONTRAST MEDIA REACTION [None]
  - FEELING HOT [None]
  - FLUSHING [None]
  - URTICARIA [None]
